FAERS Safety Report 21350214 (Version 1)
Quarter: 2022Q3

REPORT INFORMATION
  Report Type: Spontaneous
  Country: US (occurrence: None)
  Receive Date: 20220918
  Receipt Date: 20220918
  Transmission Date: 20221026
  Serious: Yes (unspecified)
  Sender: FDA-Public Use
  Company Number: None

PATIENT
  Age: 15 Year
  Weight: 41.85 kg

DRUGS (10)
  1. CEPHALEXIN [Suspect]
     Active Substance: CEPHALEXIN
     Indication: Postoperative wound infection
     Dosage: OTHER QUANTITY : 28 CAPSULE(S);?FREQUENCY : 4 TIMES A DAY;?
     Route: 048
  2. CYPROHEPTADINE [Concomitant]
     Active Substance: CYPROHEPTADINE
  3. Famotodine [Concomitant]
  4. PYRIDOSTIGMINE [Concomitant]
     Active Substance: PYRIDOSTIGMINE
  5. Probotics [Concomitant]
  6. Vitamin D [Concomitant]
  7. Heme iron [Concomitant]
  8. FISH OIL [Concomitant]
  9. MIGRELIEF [Concomitant]
  10. Papaya digestive enzymes [Concomitant]

REACTIONS (4)
  - Mouth ulceration [None]
  - Tongue ulceration [None]
  - Fatigue [None]
  - Asthenia [None]

NARRATIVE: CASE EVENT DATE: 20220916
